FAERS Safety Report 21372180 (Version 1)
Quarter: 2022Q3

REPORT INFORMATION
  Report Type: Spontaneous
  Country: None (occurrence: GB)
  Receive Date: 20220923
  Receipt Date: 20220923
  Transmission Date: 20221026
  Serious: Yes (Hospitalization, Other)
  Sender: FDA-Public Use
  Company Number: GB-Ascend Therapeutics US, LLC-2133151

PATIENT
  Age: 46 Year
  Sex: Female

DRUGS (4)
  1. ESTROGEL [Suspect]
     Active Substance: ESTRADIOL
     Indication: Product used for unknown indication
     Route: 062
  2. ESTROGEL [Suspect]
     Active Substance: ESTRADIOL
  3. ESTRADIOL [Suspect]
     Active Substance: ESTRADIOL
     Route: 062
  4. NORETHINDRONE [Suspect]
     Active Substance: NORETHINDRONE
     Route: 062

REACTIONS (6)
  - Colitis [Unknown]
  - Colitis ischaemic [Unknown]
  - Large intestinal haemorrhage [Unknown]
  - Vasculitis gastrointestinal [Unknown]
  - Intestinal ischaemia [Unknown]
  - Reperfusion injury [Unknown]

NARRATIVE: CASE EVENT DATE: 20220630
